FAERS Safety Report 9052970 (Version 2)
Quarter: 2013Q3

REPORT INFORMATION
  Report Type: Spontaneous
  Country: US (occurrence: US)
  Receive Date: 20130208
  Receipt Date: 20130820
  Transmission Date: 20140515
  Serious: No
  Sender: FDA-Public Use
  Company Number: US-009507513-1302USA000830

PATIENT
  Age: 22 Year
  Sex: Female
  Weight: 91.61 kg

DRUGS (3)
  1. IMPLANON [Suspect]
     Indication: CONTRACEPTION
     Dosage: UNK
     Route: 059
     Dates: start: 20130204
  2. IMPLANON [Suspect]
     Dosage: UNK
     Dates: start: 20130204
  3. IMPLANON [Suspect]
     Dosage: UNK
     Dates: start: 20130204

REACTIONS (2)
  - Device difficult to use [Unknown]
  - No adverse event [Unknown]
